FAERS Safety Report 11279950 (Version 1)
Quarter: 2015Q3

REPORT INFORMATION
  Report Type: Spontaneous
  Country: TW (occurrence: TW)
  Receive Date: 20150717
  Receipt Date: 20150717
  Transmission Date: 20151125
  Serious: Yes (Hospitalization)
  Sender: FDA-Public Use
  Company Number: TW-MYLANLABS-2015M1023577

PATIENT

DRUGS (1)
  1. WARFARIN [Suspect]
     Active Substance: WARFARIN
     Indication: MITRAL VALVE REPLACEMENT
     Route: 065

REACTIONS (3)
  - Blindness [Not Recovered/Not Resolved]
  - Exophthalmos [Recovered/Resolved]
  - Eye haemorrhage [Recovered/Resolved]
